FAERS Safety Report 12826588 (Version 1)
Quarter: 2016Q4

REPORT INFORMATION
  Report Type: Spontaneous
  Country: US (occurrence: US)
  Receive Date: 20161007
  Receipt Date: 20161007
  Transmission Date: 20170207
  Serious: No
  Sender: FDA-Public Use
  Company Number: US-WATSON-2016-05033

PATIENT
  Age: 70 Year
  Sex: Male

DRUGS (1)
  1. FENTANYL-25 (WATSON LABORATORIES) [Suspect]
     Active Substance: FENTANYL
     Indication: BONE PAIN
     Dosage: 25 ?G EVERY 72 HOURS
     Route: 062

REACTIONS (1)
  - Drug ineffective [Not Recovered/Not Resolved]
